FAERS Safety Report 10985670 (Version 1)
Quarter: 2015Q2

REPORT INFORMATION
  Report Type: Spontaneous
  Country: US (occurrence: US)
  Receive Date: 20150404
  Receipt Date: 20150404
  Transmission Date: 20150821
  Serious: No
  Sender: FDA-Public Use
  Company Number: US-SA-2015SA025631

PATIENT
  Sex: Female

DRUGS (6)
  1. ALLEGRA-D [Suspect]
     Active Substance: FEXOFENADINE\PSEUDOEPHEDRINE
     Indication: VERTIGO
     Dosage: TOOK 3 ALLEGRA D 12 HR TODAY: ONE AT 8 AM, ONE AT 12 NOON, ONE AT 4:30 PM.
     Route: 048
  2. ALLEGRA-D [Suspect]
     Active Substance: FEXOFENADINE\PSEUDOEPHEDRINE
     Indication: NASAL CONGESTION
     Dosage: TOOK 3 ALLEGRA D 12 HR TODAY: ONE AT 8 AM, ONE AT 12 NOON, ONE AT 4:30 PM.
     Route: 048
  3. ALLEGRA-D [Suspect]
     Active Substance: FEXOFENADINE\PSEUDOEPHEDRINE
     Indication: BRONCHITIS
     Dosage: TOOK 1 OR 2 ALLEGRA LAST WEEK
     Route: 048
  4. ALLEGRA-D [Suspect]
     Active Substance: FEXOFENADINE\PSEUDOEPHEDRINE
     Indication: NASAL CONGESTION
     Dosage: TOOK 1 OR 2 ALLEGRA LAST WEEK
     Route: 048
  5. ALLEGRA-D [Suspect]
     Active Substance: FEXOFENADINE\PSEUDOEPHEDRINE
     Indication: BRONCHITIS
     Dosage: TOOK 3 ALLEGRA D 12 HR TODAY: ONE AT 8 AM, ONE AT 12 NOON, ONE AT 4:30 PM.
     Route: 048
  6. ALLEGRA-D [Suspect]
     Active Substance: FEXOFENADINE\PSEUDOEPHEDRINE
     Indication: VERTIGO
     Dosage: TOOK 1 OR 2 ALLEGRA LAST WEEK
     Route: 048

REACTIONS (4)
  - Chest discomfort [Recovered/Resolved]
  - Chest pain [Recovered/Resolved]
  - Accidental overdose [Unknown]
  - Nervousness [Unknown]
